FAERS Safety Report 9454104 (Version 1)
Quarter: 2013Q3

REPORT INFORMATION
  Report Type: Spontaneous
  Country: US (occurrence: None)
  Receive Date: 20130809
  Receipt Date: 20130809
  Transmission Date: 20140515
  Serious: Yes (Other)
  Sender: FDA-Public Use
  Company Number: None

PATIENT
  Age: 42 Year
  Sex: Male
  Weight: 86.18 kg

DRUGS (2)
  1. EXCEDRIN EXTRA STRENGTH [Suspect]
     Indication: BACK PAIN
     Dosage: 1 CAPLET IN THE MORNING  BY MOUTH
     Route: 048
     Dates: start: 20130805, end: 20130805
  2. VITAMIN D3 [Concomitant]

REACTIONS (3)
  - Nausea [None]
  - Vomiting projectile [None]
  - Hepatic pain [None]
